FAERS Safety Report 7784279-4 (Version None)
Quarter: 2011Q3

REPORT INFORMATION
  Report Type: 
  Country: None (occurrence: None)
  Receive Date: 20110928
  Receipt Date: 20110915
  Transmission Date: 20111222
  Serious: Yes (Other)
  Sender: FDA-Public Use
  Company Number: PHHY2011US66275

PATIENT
  Sex: Female
  Weight: 55.329 kg

DRUGS (13)
  1. PRILOSEC [Concomitant]
     Indication: ABDOMINAL DISCOMFORT
     Dosage: 20 MG, BID
  2. GILENYA [Suspect]
     Indication: MULTIPLE SCLEROSIS
     Dosage: 0.5 MG, DAILY
     Route: 048
     Dates: start: 20110104
  3. NEURONTIN [Concomitant]
     Indication: PAIN IN EXTREMITY
     Dosage: 100 MG, AT BEDTIME
     Route: 048
  4. OVRAL-28 [Concomitant]
     Indication: DYSMENORRHOEA
     Dosage: 0.3-30 MG-UG
     Route: 048
  5. FLONASE [Concomitant]
     Dosage: 50 UG, QHS, AT BEDTIME
  6. AMBIEN [Concomitant]
     Indication: INSOMNIA
     Dosage: 10 MG, QHS
  7. RETIN-A [Concomitant]
  8. VITAMIN D [Concomitant]
     Dosage: 2000 U, UNK
     Route: 048
  9. PROVIGIL [Concomitant]
     Indication: FATIGUE
     Dosage: 100 MG, PRN
     Route: 048
  10. GILENYA [Suspect]
     Dosage: 0.5 MG, UNK
     Route: 048
  11. ADOXA [Concomitant]
     Indication: ACNE
     Dosage: 100 MG, DAILY
     Route: 048
     Dates: start: 20090414
  12. VITAMIN D [Concomitant]
     Dosage: 2000 U/DAY
     Route: 048
  13. ARTIFICIAL TEARS [Concomitant]
     Dosage: 1 DRP, DAILY IN BOTH EYES

REACTIONS (6)
  - HERPES ZOSTER [None]
  - PYELONEPHRITIS [None]
  - RASH [None]
  - WHITE BLOOD CELL COUNT DECREASED [None]
  - ABDOMINAL PAIN UPPER [None]
  - WEIGHT DECREASED [None]
